FAERS Safety Report 8757447 (Version 1)
Quarter: 2012Q4

REPORT INFORMATION
  Report Type: 
  Country: US (occurrence: US)
  Receive Date: 20120828
  Receipt Date: 20120828
  Transmission Date: 20130627
  Serious: No
  Sender: FDA-Public Use
  Company Number: US-PFIZER INC-2012208510

PATIENT
  Age: 81 Year
  Sex: Female
  Weight: 58.96 kg

DRUGS (8)
  1. NORVASC [Suspect]
     Indication: HYPERTENSION
     Dosage: 5 mg, daily
     Route: 048
  2. NORVASC [Suspect]
     Dosage: 7.5 mg, 2x/day
     Dates: start: 20120106
  3. AMLODIPINE BESILATE [Suspect]
     Indication: HYPERTENSION
     Dosage: UNK
     Route: 048
  4. AMLODIPINE BESILATE [Suspect]
     Dosage: 5 mg,  daily
     Route: 048
     Dates: start: 201208, end: 20120821
  5. VITAMIN D [Suspect]
     Dosage: 1000 IU, daily
     Route: 048
  6. ATENOLOL [Concomitant]
     Indication: HYPERTENSION
     Dosage: 25 mg, daily
  7. BYSTOLIC [Concomitant]
     Indication: HYPERTENSION
     Dosage: 25 mg, daily
     Route: 048
     Dates: start: 201201
  8. POTASSIUM CHLORIDE [Concomitant]
     Dosage: 20 mEq, daily
     Route: 048

REACTIONS (3)
  - Drug ineffective [Recovered/Resolved]
  - Dizziness [Recovered/Resolved]
  - Vitamin D decreased [Unknown]
